FAERS Safety Report 7055536-4 (Version None)
Quarter: 2010Q4

REPORT INFORMATION
  Report Type: 
  Country: None (occurrence: None)
  Receive Date: 20101021
  Receipt Date: 20101006
  Transmission Date: 20110411
  Serious: Yes (Other)
  Sender: FDA-Public Use
  Company Number: US-BAYER-200924575NA

PATIENT
  Age: 63 Year
  Sex: Female
  Weight: 64 kg

DRUGS (45)
  1. MAGNEVIST [Suspect]
     Indication: NUCLEAR MAGNETIC RESONANCE IMAGING
     Route: 042
     Dates: start: 19980330, end: 19980330
  2. MAGNEVIST [Suspect]
     Dates: start: 20050124, end: 20050124
  3. OMNISCAN [Suspect]
  4. OPTIMARK [Suspect]
  5. MULTIHANCE [Suspect]
  6. PROHANCE [Suspect]
  7. RENAGEL [Concomitant]
  8. PLAVIX [Concomitant]
  9. METOPROLOL TARTRATE [Concomitant]
  10. PRAVACHOL [Concomitant]
  11. PHOSLO [Concomitant]
  12. NORVASC [Concomitant]
  13. ALBUTEROL [Concomitant]
  14. AMIODARONE HCL [Concomitant]
  15. INDOMETHACIN [Concomitant]
  16. TOPROL-XL [Concomitant]
  17. PRANDIN [Concomitant]
  18. BACTRIM [Concomitant]
  19. NIZORAL [Concomitant]
  20. OLUX FOAM [Concomitant]
  21. BENADRYL [Concomitant]
  22. SULAMYD OPHTHALMIC DROPS [Concomitant]
     Indication: CONJUNCTIVITIS
  23. VANCOMYCIN [Concomitant]
     Dosage: 1 GRAM IVPB ONE TIME ONLY DURING DIALYSIS
  24. CLONIDINE [Concomitant]
  25. MINOXIDIL [Concomitant]
  26. GLYBURIDE [Concomitant]
  27. AMLODIPINE [Concomitant]
  28. ISOSORBIDE DINITRATE [Concomitant]
  29. SENSIPAR [Concomitant]
  30. PHOSLO [Concomitant]
  31. EPO ALFA [Concomitant]
  32. ZEMPLAR [Concomitant]
  33. ASPIRIN [Concomitant]
  34. NITRO-BID [Concomitant]
  35. ISOSORBIDE MONONITRATE [Concomitant]
  36. FOSINOPRIL SODIUM [Concomitant]
  37. SEVELAMER [Concomitant]
  38. HEPARIN [Concomitant]
  39. EPOGEN [Concomitant]
  40. VENOFER [Concomitant]
  41. FERRELICIT [Concomitant]
  42. DEXFERRUM [Concomitant]
  43. COUMADIN [Concomitant]
  44. MONOPRIL [Concomitant]
  45. FERROUS SULFATE [Concomitant]

REACTIONS (31)
  - ARTHRALGIA [None]
  - ASTHENIA [None]
  - DERMATITIS [None]
  - DRY SKIN [None]
  - DYSSTASIA [None]
  - EXTREMITY CONTRACTURE [None]
  - FATIGUE [None]
  - FIBROSIS [None]
  - HYPOAESTHESIA [None]
  - JOINT RANGE OF MOTION DECREASED [None]
  - JOINT STIFFNESS [None]
  - JOINT SWELLING [None]
  - MUSCLE FATIGUE [None]
  - MUSCLE TIGHTNESS [None]
  - MUSCULOSKELETAL STIFFNESS [None]
  - MYALGIA [None]
  - NEPHROGENIC SYSTEMIC FIBROSIS [None]
  - NODULE ON EXTREMITY [None]
  - OEDEMA [None]
  - PAIN [None]
  - PAIN IN EXTREMITY [None]
  - PRURITUS [None]
  - RASH PAPULAR [None]
  - SKIN DISORDER [None]
  - SKIN HYPERPIGMENTATION [None]
  - SKIN HYPERTROPHY [None]
  - SKIN INDURATION [None]
  - SKIN LESION [None]
  - SKIN PLAQUE [None]
  - SKIN TIGHTNESS [None]
  - SKIN ULCER [None]
